FAERS Safety Report 8835058 (Version 1)
Quarter: 2012Q4

REPORT INFORMATION
  Report Type: Spontaneous
  Country: US (occurrence: None)
  Receive Date: 20121009
  Receipt Date: 20121009
  Transmission Date: 20130627
  Serious: Yes (Hospitalization)
  Sender: FDA-Public Use
  Company Number: DSA_59913_2012

PATIENT
  Age: 12 Year
  Sex: Male
  Weight: 62 kg

DRUGS (9)
  1. CLINDAMYCIN [Suspect]
     Indication: HAEMODYNAMIC INSTABILITY
     Dosage: 700 mg (12.7 mg/kg/dose) every 8 hours Intravenous (not otherwise specified)
     Route: 042
  2. CLINDAMYCIN [Suspect]
     Indication: PNEUMONIA NECROTISING
     Dosage: 700 mg (12.7 mg/kg/dose) every 8 hours Intravenous (not otherwise specified)
     Route: 042
  3. CLINDAMYCIN [Suspect]
     Indication: HAEMODYNAMIC INSTABILITY
     Dosage: 930 mg (45 mg/kg/dose) every 8 hours Intravenous (not otherwise specified)
     Route: 042
  4. CLINDAMYCIN [Suspect]
     Indication: PNEUMONIA NECROTISING
     Dosage: 930 mg (45 mg/kg/dose) every 8 hours Intravenous (not otherwise specified)
     Route: 042
  5. VANCOMYCIN [Concomitant]
  6. CEFTRIAXONE [Concomitant]
  7. DOPAMINE [Concomitant]
  8. EPINEPHRINE [Concomitant]
  9. MILRINONE [Concomitant]

REACTIONS (4)
  - Renal failure acute [None]
  - Continuous haemodiafiltration [None]
  - Peritoneal dialysis [None]
  - Hyperphosphataemia [None]
